FAERS Safety Report 4987487-0 (Version None)
Quarter: 2006Q2

REPORT INFORMATION
  Report Type: 
  Country: None (occurrence: None)
  Receive Date: 20060501
  Receipt Date: 20051114
  Transmission Date: 20061013
  Serious: Yes (Hospitalization, Disabling)
  Sender: FDA-Public Use
  Company Number: US-MERCK-0511USA02314

PATIENT
  Age: 51 Year
  Sex: Male
  Weight: 123 kg

DRUGS (2)
  1. VIOXX [Suspect]
     Indication: MONARTHRITIS
     Route: 048
     Dates: start: 20020701, end: 20041001
  2. ADVIL [Concomitant]
     Route: 065

REACTIONS (15)
  - ANHEDONIA [None]
  - ARTHROPATHY [None]
  - ATRIAL FIBRILLATION [None]
  - ATRIAL FLUTTER [None]
  - ATRIAL SEPTAL DEFECT [None]
  - CARDIOMYOPATHY [None]
  - CHILLS [None]
  - COUGH [None]
  - DILATATION ATRIAL [None]
  - FATIGUE [None]
  - LEFT VENTRICULAR FAILURE [None]
  - MENTAL DISORDER [None]
  - PAIN [None]
  - SLEEP APNOEA SYNDROME [None]
  - VENTRICULAR HYPERTROPHY [None]
